FAERS Safety Report 15848909 (Version 1)
Quarter: 2019Q1

REPORT INFORMATION
  Report Type: Spontaneous
  Country: RU (occurrence: RU)
  Receive Date: 20190121
  Receipt Date: 20190121
  Transmission Date: 20190417
  Serious: Yes (Other)
  Sender: FDA-Public Use
  Company Number: RU-MYLANLABS-2019M1004176

PATIENT
  Age: 7 Decade
  Sex: Female

DRUGS (9)
  1. METHYLPREDNISOLONE. [Suspect]
     Active Substance: METHYLPREDNISOLONE
     Indication: ENDOCRINE OPHTHALMOPATHY
     Dosage: FIRST PULSE THERAPY WITH THREE INJECTIONS FOLLOWED BY MULTIPLE ADMINISTRATIONS
     Route: 041
     Dates: start: 201310
  2. LEVOTHYROXINE SODIUM. [Concomitant]
     Active Substance: LEVOTHYROXINE SODIUM
     Dosage: 125 MICROGRAM
     Route: 065
     Dates: start: 20141216
  3. DEXAMETHASONE. [Suspect]
     Active Substance: DEXAMETHASONE
     Indication: ENDOCRINE OPHTHALMOPATHY
     Dosage: MULTIPLE PERIOCULAR INJECTIONS
     Route: 050
  4. DEXAMETHASONE. [Suspect]
     Active Substance: DEXAMETHASONE
     Indication: ENDOCRINE OPHTHALMOPATHY
     Dosage: 12 DOSAGE FORM, QD
     Route: 065
     Dates: start: 201209
  5. PREDNISONE. [Suspect]
     Active Substance: PREDNISONE
     Dosage: ADMINISTERED BETWEEN METHYLPREDNISOLONE INFUSIONS
     Route: 048
  6. METHYLPREDNISOLONE. [Suspect]
     Active Substance: METHYLPREDNISOLONE
     Indication: ENDOCRINE OPHTHALMOPATHY
     Dosage: 1000 MILLIGRAM
     Route: 041
  7. METHYLPREDNISOLONE. [Suspect]
     Active Substance: METHYLPREDNISOLONE
     Dosage: 125 MILLIGRAM
     Route: 041
  8. DEXAMETHASONE. [Suspect]
     Active Substance: DEXAMETHASONE
     Route: 048
     Dates: start: 201310
  9. METHYLPREDNISOLONE. [Suspect]
     Active Substance: METHYLPREDNISOLONE
     Dosage: 250 MILLIGRAM
     Route: 041

REACTIONS (4)
  - Weight increased [Unknown]
  - Cataract [Recovering/Resolving]
  - Drug ineffective [Unknown]
  - Cushingoid [Unknown]
